FAERS Safety Report 18985846 (Version 1)
Quarter: 2021Q1

REPORT INFORMATION
  Report Type: Spontaneous
  Country: EG (occurrence: EG)
  Receive Date: 20210309
  Receipt Date: 20210309
  Transmission Date: 20210420
  Serious: Yes (Other)
  Sender: FDA-Public Use
  Company Number: EG-ELI_LILLY_AND_COMPANY-EG202103003112

PATIENT
  Sex: Female

DRUGS (2)
  1. FORTEO [Suspect]
     Active Substance: TERIPARATIDE
     Indication: BLOOD CALCIUM DECREASED
     Dosage: 20 UG, DAILY
     Route: 058
     Dates: start: 2020
  2. FORTEO [Suspect]
     Active Substance: TERIPARATIDE
     Dosage: 40 UG, DAILY
     Route: 058

REACTIONS (5)
  - Seizure [Unknown]
  - Overdose [Not Recovered/Not Resolved]
  - Inappropriate schedule of product administration [Not Recovered/Not Resolved]
  - Blood calcium decreased [Unknown]
  - Off label use [Not Recovered/Not Resolved]

NARRATIVE: CASE EVENT DATE: 2020
